FAERS Safety Report 4914172-3 (Version None)
Quarter: 2006Q1

REPORT INFORMATION
  Report Type: 
  Country: None (occurrence: None)
  Receive Date: 20060213
  Receipt Date: 20060130
  Transmission Date: 20060701
  Serious: Yes (Hospitalization, Other)
  Sender: FDA-Public Use
  Company Number: 2006EU000231

PATIENT
  Sex: Male

DRUGS (5)
  1. PROGRAF [Suspect]
     Indication: RENAL TRANSPLANT
     Dosage: SEE IMAGE
     Route: 048
     Dates: start: 20041201
  2. RIFADIN [Suspect]
     Indication: MENINGITIS
     Dates: start: 20050901
  3. PIRILENE (PYRAZINAMIDE) [Concomitant]
  4. CELLCEPT [Concomitant]
  5. CORTICOSTEROIDS [Concomitant]

REACTIONS (9)
  - AGITATION [None]
  - ANXIETY [None]
  - DEPRESSION [None]
  - DRUG INTERACTION [None]
  - DRUG LEVEL DECREASED [None]
  - FEAR [None]
  - INSOMNIA [None]
  - MENINGITIS [None]
  - TINNITUS [None]
